FAERS Safety Report 9939347 (Version 1)
Quarter: 2014Q1

REPORT INFORMATION
  Report Type: Report from Study
  Country: US (occurrence: US)
  Receive Date: 20140303
  Receipt Date: 20140303
  Transmission Date: 20141002
  Serious: No
  Sender: FDA-Public Use
  Company Number: US-ABBVIE-13P-163-1034446-00

PATIENT
  Sex: Male
  Weight: 89.44 kg

DRUGS (9)
  1. HUMIRA PEN [Suspect]
     Indication: PSORIATIC ARTHROPATHY
     Dates: start: 201201
  2. HUMIRA PEN [Suspect]
     Dates: start: 2006, end: 2008
  3. HUMIRA PEN [Suspect]
     Dates: start: 2008, end: 2009
  4. HUMIRA PEN [Suspect]
     Dates: start: 2009, end: 201112
  5. COUMADIN [Concomitant]
     Indication: PRODUCT USED FOR UNKNOWN INDICATION
     Dates: start: 2006
  6. DIGOXIN [Concomitant]
     Indication: PRODUCT USED FOR UNKNOWN INDICATION
     Dates: start: 2006
  7. LOSARTEN [Concomitant]
     Indication: PRODUCT USED FOR UNKNOWN INDICATION
     Dates: start: 2006
  8. METOPROLOL [Concomitant]
     Indication: PRODUCT USED FOR UNKNOWN INDICATION
     Dates: start: 2006
  9. CARVEDILOL [Concomitant]
     Indication: PRODUCT USED FOR UNKNOWN INDICATION
     Dates: start: 2006

REACTIONS (2)
  - Off label use [Not Recovered/Not Resolved]
  - Nasopharyngitis [Recovered/Resolved]
